FAERS Safety Report 9052572 (Version 2)
Quarter: 2013Q1

REPORT INFORMATION
  Report Type: Spontaneous
  Country: US (occurrence: US)
  Receive Date: 20130207
  Receipt Date: 20130225
  Transmission Date: 20140127
  Serious: No
  Sender: FDA-Public Use
  Company Number: US-PFIZER INC-2013045455

PATIENT
  Age: 42 Year
  Sex: Female
  Weight: 143 kg

DRUGS (3)
  1. MORPHINE SULFATE [Suspect]
     Dosage: 60 MG, 3X/DAY
  2. MORPHINE SULFATE [Suspect]
     Dosage: 60 MG, 2X/DAY
  3. SUTENT [Concomitant]
     Dosage: 25 MG, 1X/DAY
     Dates: start: 20121114

REACTIONS (1)
  - Constipation [Unknown]
